FAERS Safety Report 8613630-8 (Version None)
Quarter: 2012Q3

REPORT INFORMATION
  Report Type: 
  Country: None (occurrence: None)
  Receive Date: 20120823
  Receipt Date: 20120809
  Transmission Date: 20120928
  Serious: Yes (Other)
  Sender: FDA-Public Use
  Company Number: JP-009507513-2012SP018706

PATIENT

DRUGS (26)
  1. PEGINTERFERON ALFA-2B [Suspect]
     Indication: HEPATITIS C
     Dosage: 1.5 MICROGRAM PER KILOGRAM QW
     Route: 058
     Dates: start: 20120207, end: 20120313
  2. PEGINTERFERON ALFA-2B [Suspect]
     Dosage: 0.75 MICROGRAM PER KILOGRAM, QW
     Route: 058
     Dates: start: 20120703, end: 20120710
  3. REBETOL [Suspect]
     Indication: HEPATITIS C
     Dosage: 800 MG, QD
     Route: 048
     Dates: start: 20120207, end: 20120305
  4. PEGINTERFERON ALFA-2B [Suspect]
     Dosage: 0.43 MICROGRAM PER KILOGRAM, QW
     Route: 058
     Dates: start: 20120410, end: 20120410
  5. PEGINTERFERON ALFA-2B [Suspect]
     Dosage: 0.6 MICROGRAM PER KILOGRAM, QW
     Route: 058
     Dates: start: 20120417, end: 20120501
  6. REBETOL [Suspect]
     Dosage: 400 MG, QD
     Route: 048
     Dates: start: 20120424, end: 20120430
  7. TELAVIC [Suspect]
     Indication: HEPATITIS C
     Dosage: 2250 MG, QD
     Route: 048
     Dates: start: 20120207, end: 20120318
  8. URSO 250 [Concomitant]
     Indication: HEPATITIS C
     Dosage: 600 MG, QD
     Route: 048
     Dates: end: 20120312
  9. PEGINTERFERON ALFA-2B [Suspect]
     Dosage: 0.43 MICROGRAM PER KILOGRAM, QW
     Route: 058
     Dates: start: 20120515, end: 20120626
  10. REBETOL [Suspect]
     Dosage: 200 MG, QD
     Route: 048
     Dates: start: 20120403, end: 20120423
  11. AMLODIPINE [Concomitant]
     Indication: HYPERTENSION
     Dosage: 2.5 MG, QD
     Route: 048
     Dates: start: 20110606, end: 20120508
  12. PEGINTERFERON ALFA-2B [Suspect]
     Dosage: 0.75 MICROGRAM PER KILOGRAM, QW
     Route: 058
     Dates: start: 20120508, end: 20120508
  13. REBETOL [Suspect]
     Dosage: 400 MG, QD
     Route: 048
     Dates: start: 20120313, end: 20120318
  14. REBETOL [Suspect]
     Dosage: 600 MG, QD
     Route: 048
     Dates: start: 20120501, end: 20120507
  15. OLMESARTAN MEDOXOMIL [Concomitant]
     Dosage: 10 MG, QD
     Route: 048
     Dates: start: 20120508
  16. TELAVIC [Suspect]
     Dosage: 750 MG, QD
     Route: 048
     Dates: start: 20120403, end: 20120416
  17. PEGINTERFERON ALFA-2B [Suspect]
     Dosage: 0.75 MICROGRAM PER KILOGRAM, QW
     Route: 058
     Dates: start: 20120403, end: 20120403
  18. PEGINTERFERON ALFA-2B [Suspect]
     Dosage: 0.86 MICROGRAM PER KILOGRAM, QW
     Route: 058
     Dates: start: 20120717
  19. REBETOL [Suspect]
     Dosage: 600 MG, QD
     Route: 048
     Dates: start: 20120306, end: 20120312
  20. TELAVIC [Suspect]
     Dosage: 1000 MG, QD
     Route: 048
     Dates: start: 20120417, end: 20120508
  21. OLMESARTAN MEDOXOMIL [Concomitant]
     Indication: HYPERTENSION
     Dosage: 20 MG, QD
     Route: 048
     Dates: start: 20110606, end: 20120507
  22. NESINA [Concomitant]
     Indication: DIABETES MELLITUS
     Dosage: 25 MG, QD
     Route: 048
     Dates: start: 20120113
  23. CONFATANIN [Concomitant]
     Indication: PROPHYLAXIS
     Dosage: PRO RE NATA
     Route: 048
     Dates: start: 20120206, end: 20120318
  24. POSTERISAN FORTE [Concomitant]
     Indication: PRODUCT USED FOR UNKNOWN INDICATION
     Dosage: 2 G, PRN
     Route: 065
     Dates: start: 20120228
  25. REBETOL [Suspect]
     Dosage: 800 MG, QD
     Route: 048
     Dates: start: 20120508
  26. CLOBETASOL PROPIONATE [Concomitant]
     Indication: PRODUCT USED FOR UNKNOWN INDICATION
     Dosage: 5 G, PRN
     Route: 065
     Dates: start: 20120210, end: 20120227

REACTIONS (4)
  - HYPERURICAEMIA [None]
  - HAEMOGLOBIN DECREASED [None]
  - WHITE BLOOD CELL COUNT DECREASED [None]
  - NEUTROPHIL COUNT DECREASED [None]
